FAERS Safety Report 4579856-8 (Version None)
Quarter: 2005Q1

REPORT INFORMATION
  Report Type: 
  Country: None (occurrence: None)
  Receive Date: 20050210
  Receipt Date: 20050210
  Transmission Date: 20050727
  Serious: No
  Sender: FDA-Public Use
  Company Number: None

PATIENT
  Sex: Female
  Weight: 49.9 kg

DRUGS (18)
  1. ALLOPURINOL [Suspect]
     Dosage: 300 MG PO QD ON DAYS 1-14
     Route: 048
  2. CYCLOPHOSPHAMIDE [Suspect]
     Dosage: 1200 MG/M2 IV OVER 15-30 MIN ON DAY 1
     Route: 042
  3. DAUNORUBICIN HCL [Suspect]
     Dosage: 80 MG/M2/DAY X 3 DAYS IV ON DAYS 1,2,3
     Route: 042
  4. VINCRISTINE [Suspect]
     Dosage: 2 MG IVP
     Route: 042
  5. DEXAMETHASONE [Suspect]
     Dosage: 5 MG/M2 PO BID ON DAYS 1-7 AND 15-21
     Route: 048
  6. L-ASPARGINASE [Suspect]
     Dosage: 6000 U/M2 SC/IM ON DAYS 5,8,11,15,18,22
  7. NEUPOGEN [Suspect]
     Dosage: 5 MCG/KG/DAY SC STARTING DAY 4 X 7 DAYS AND CONTINUING UNTIL ANC IS } 5000 MCL PRN
  8. METHOTREXATE [Suspect]
     Dosage: 15 MG + 50 MG HYDROCORTISONE IT ON DAY 1
     Route: 037
  9. CYCLOPHOSPHAMIDE [Suspect]
     Dosage: 1000 MG/M2 IV OVER 15-30 MIN ON DAY 1
     Route: 042
  10. CYTARABINE [Suspect]
     Dosage: 2000 MG/M2 IV OVER 3 HR ON DAYS 1,2, AND 3
  11. L-ASPARGINASE [Suspect]
     Dosage: 6000 U/M2 SC/IM ON DAYS 15, 18, AND 22
  12. AMBIEN [Concomitant]
  13. LOPRESSOR [Concomitant]
  14. OXYCODONE [Concomitant]
  15. PROTONIX [Concomitant]
  16. SYNTHROID [Concomitant]
  17. XANAX [Concomitant]
  18. ZOFRAN [Concomitant]

REACTIONS (12)
  - ACTIVITIES OF DAILY LIVING IMPAIRED [None]
  - ASTHENIA [None]
  - ATRIAL FIBRILLATION [None]
  - CHEST PAIN [None]
  - CRYING [None]
  - DEHYDRATION [None]
  - FATIGUE [None]
  - FEELING ABNORMAL [None]
  - HAEMOGLOBIN DECREASED [None]
  - HYPOTENSION [None]
  - MALAISE [None]
  - ORAL INTAKE REDUCED [None]
